FAERS Safety Report 6775116-5 (Version None)
Quarter: 2010Q2

REPORT INFORMATION
  Report Type: 
  Country: None (occurrence: None)
  Receive Date: 20100520
  Receipt Date: 20090916
  Transmission Date: 20101027
  Serious: Yes (Other)
  Sender: FDA-Public Use
  Company Number: 2008051527

PATIENT
  Age: 83 Year
  Sex: Female

DRUGS (17)
  1. PROVERA [Suspect]
     Indication: HORMONE REPLACEMENT THERAPY
     Dosage: ORAL
     Route: 048
     Dates: end: 19990101
  2. PROVERA [Suspect]
     Indication: MENOPAUSE
     Dosage: ORAL
     Route: 048
     Dates: end: 19990101
  3. MEDROXYPROGESTERONE ACETATE [Suspect]
     Indication: HORMONE REPLACEMENT THERAPY
     Dosage: ORAL
     Route: 048
     Dates: end: 19990101
  4. MEDROXYPROGESTERONE ACETATE [Suspect]
     Indication: MENOPAUSE
     Dosage: ORAL
     Route: 048
     Dates: end: 19990101
  5. MEDROXYPROGESTERONE [Suspect]
     Indication: HORMONE REPLACEMENT THERAPY
     Dates: end: 19990101
  6. MEDROXYPROGESTERONE [Suspect]
     Indication: MENOPAUSE
     Dates: end: 19990101
  7. PREMARIN [Suspect]
     Indication: HORMONE REPLACEMENT THERAPY
     Dates: end: 19990101
  8. PREMARIN [Suspect]
     Indication: MENOPAUSE
     Dates: end: 19990101
  9. CYCRIN [Suspect]
     Indication: HORMONE REPLACEMENT THERAPY
     Dates: start: 19960101
  10. CYCRIN [Suspect]
     Indication: MENOPAUSE
     Dates: start: 19960101
  11. PREMPRO [Suspect]
     Indication: HORMONE REPLACEMENT THERAPY
     Dates: start: 19990101, end: 20040101
  12. PREMPRO [Suspect]
     Indication: MENOPAUSE
     Dates: start: 19990101, end: 20040101
  13. AMARYL [Concomitant]
  14. LIPITOR [Concomitant]
  15. TRIAMTERENE (TRIAMTERENE) [Concomitant]
  16. ENALAPRIL MALEATE [Concomitant]
  17. NORVASC [Concomitant]

REACTIONS (1)
  - BREAST CANCER FEMALE [None]
